FAERS Safety Report 9557003 (Version 1)
Quarter: 2013Q3

REPORT INFORMATION
  Report Type: Spontaneous
  Country: US (occurrence: US)
  Receive Date: 20130926
  Receipt Date: 20130926
  Transmission Date: 20140515
  Serious: No
  Sender: FDA-Public Use
  Company Number: US-B.I. PHARMACEUTICALS,INC./RIDGEFIELD-2013-BI-29497BP

PATIENT
  Age: 75 Year
  Sex: Female

DRUGS (12)
  1. SPIRIVA [Suspect]
     Indication: ASTHMA
     Dosage: 18 MCG
     Route: 055
     Dates: start: 20130820
  2. DULERA [Concomitant]
     Route: 055
  3. PROAIR [Concomitant]
     Route: 055
  4. QNASL [Concomitant]
     Route: 045
  5. HYDROCHLOROTHIAZIDE [Concomitant]
     Dosage: 12.5 MG
     Route: 048
  6. SOTALOL [Concomitant]
     Dosage: 80 MG
     Route: 048
  7. METHANAMINE [Concomitant]
     Route: 048
  8. CAPTOPRIL [Concomitant]
     Route: 048
  9. VITAMIN C [Concomitant]
     Dosage: 500 MG
     Route: 048
  10. BIOTIN [Concomitant]
     Dosage: 7500 MCG
     Route: 048
  11. CRANBERRY WITH VITAMIN D [Concomitant]
     Route: 048
  12. CHOLESTRYAMINE [Concomitant]
     Route: 048

REACTIONS (3)
  - Dysphonia [Not Recovered/Not Resolved]
  - Dysphonia [Not Recovered/Not Resolved]
  - Off label use [Not Recovered/Not Resolved]
